FAERS Safety Report 9520725 (Version 1)
Quarter: 2013Q1

REPORT INFORMATION
  Report Type: Spontaneous
  Country: US (occurrence: None)
  Receive Date: 20130305
  Receipt Date: 20130305
  Transmission Date: 20140127
  Serious: Yes (Other)
  Sender: FDA-Public Use
  Company Number: 163-21880-12073261

PATIENT
  Age: 88 Year
  Sex: Female

DRUGS (4)
  1. REVLIMID (LENALIDOMIDE) (CAPSULES) [Suspect]
     Indication: MYELODYSPLASTIC SYNDROME
     Dosage: 10 MG,  21 IN 21 D,  PO
     Route: 048
     Dates: start: 20120626
  2. TYLENOL PM EXTRA STRENGTH (DOZOL) (UNKNOWN) [Concomitant]
  3. IMODIUM A-D (LOPERAMIDE HYDROCHLORIDE) (UNKNOWN) [Concomitant]
  4. PRAVACHOL (PRAVASTATIN SODIUM) (UNKNOWN) [Concomitant]

REACTIONS (3)
  - Dry skin [None]
  - Pruritus [None]
  - Erythema [None]
